FAERS Safety Report 6767197-X (Version None)
Quarter: 2010Q2

REPORT INFORMATION
  Report Type: 
  Country: None (occurrence: None)
  Receive Date: 20100611
  Receipt Date: 20100611
  Transmission Date: 20101027
  Serious: Yes (Hospitalization)
  Sender: FDA-Public Use
  Company Number: None

PATIENT
  Age: 63 Year
  Sex: Male

DRUGS (1)
  1. OXYCODONE [Suspect]
     Indication: PAIN
     Dosage: 20 MG QID PO
     Route: 048
     Dates: start: 20060731

REACTIONS (7)
  - CARCINOEMBRYONIC ANTIGEN INCREASED [None]
  - ILEUS [None]
  - METASTASES TO LIVER [None]
  - METASTASES TO PERITONEUM [None]
  - NAUSEA [None]
  - VOMITING [None]
  - WHITE BLOOD CELL COUNT INCREASED [None]
